FAERS Safety Report 10913145 (Version 1)
Quarter: 2015Q1

REPORT INFORMATION
  Report Type: Spontaneous
  Country: IN (occurrence: IN)
  Receive Date: 20150313
  Receipt Date: 20150313
  Transmission Date: 20150721
  Serious: Yes (Hospitalization, Other)
  Sender: FDA-Public Use
  Company Number: IN-BAYER-2015-035319

PATIENT
  Age: 38 Year
  Sex: Female

DRUGS (6)
  1. NIFEDIPINE. [Suspect]
     Active Substance: NIFEDIPINE
     Indication: TOCOLYSIS
     Dosage: 20 MG, STAT
  2. DEXTROSE AND SODIUM CHLORIDE INJECTION [Concomitant]
     Indication: FLUID REPLACEMENT
  3. BETAMETHASONE [Suspect]
     Active Substance: BETAMETHASONE
     Indication: MATERNAL THERAPY TO ENHANCE FOETAL LUNG MATURITY
     Dosage: DAILY DOSE 12 MG
     Route: 042
  4. BUPIVACAINE [Concomitant]
     Active Substance: BUPIVACAINE
     Indication: SPINAL ANAESTHESIA
     Dosage: 2 ML, UNK
  5. NIFEDIPINE. [Suspect]
     Active Substance: NIFEDIPINE
     Indication: TOCOLYSIS
     Dosage: 20 MG, QID
  6. FENTANYL. [Concomitant]
     Active Substance: FENTANYL
     Indication: SPINAL ANAESTHESIA
     Dosage: 25 ?G, UNK

REACTIONS (7)
  - Exposure during pregnancy [None]
  - Pulmonary oedema [Recovered/Resolved]
  - Premature delivery [None]
  - Hypotension [None]
  - Tachycardia [None]
  - Product use issue [None]
  - Premature labour [None]
